FAERS Safety Report 8268812-4 (Version None)
Quarter: 2012Q2

REPORT INFORMATION
  Report Type: 
  Country: None (occurrence: None)
  Receive Date: 20120409
  Receipt Date: 20120409
  Transmission Date: 20120825
  Serious: Yes (Other)
  Sender: FDA-Public Use
  Company Number: None

PATIENT
  Age: 32 Year
  Sex: Male
  Weight: 86.182 kg

DRUGS (1)
  1. EXCEDRIN (MIGRAINE) [Suspect]
     Indication: PAIN
     Dates: start: 20120325, end: 20120406

REACTIONS (4)
  - URTICARIA [None]
  - OEDEMA PERIPHERAL [None]
  - OEDEMA MOUTH [None]
  - HYPERSENSITIVITY [None]
